FAERS Safety Report 15143960 (Version 1)
Quarter: 2018Q3

REPORT INFORMATION
  Report Type: Spontaneous
  Country: GB (occurrence: GB)
  Receive Date: 20180713
  Receipt Date: 20180713
  Transmission Date: 20181010
  Serious: Yes (Disabling, Other)
  Sender: FDA-Public Use
  Company Number: GB-TEVA-2018-GB-925612

PATIENT
  Age: 39 Year
  Sex: Female
  Weight: 107 kg

DRUGS (10)
  1. VENTOLIN [Concomitant]
     Active Substance: ALBUTEROL SULFATE
     Route: 065
  2. AUGMENTIN [Concomitant]
     Active Substance: AMOXICILLIN\CLAVULANATE POTASSIUM
     Route: 065
  3. PARACETAMOL [Concomitant]
     Active Substance: ACETAMINOPHEN
     Route: 065
  4. CLARITHROMYCIN. [Concomitant]
     Active Substance: CLARITHROMYCIN
     Route: 065
  5. DIHYDROCODEINE [Concomitant]
     Active Substance: DIHYDROCODEINE
     Route: 065
  6. SYMBICORT [Concomitant]
     Active Substance: BUDESONIDE\FORMOTEROL FUMARATE DIHYDRATE
     Route: 065
  7. CHANELLE MED MODAFINIL [Suspect]
     Active Substance: MODAFINIL
     Indication: NARCOLEPSY
     Route: 048
     Dates: start: 20180517, end: 20180525
  8. RANITIDINE. [Concomitant]
     Active Substance: RANITIDINE
     Route: 065
  9. MIRTAZAPINE. [Concomitant]
     Active Substance: MIRTAZAPINE
     Route: 065
  10. PREDNISOLONE. [Concomitant]
     Active Substance: PREDNISOLONE
     Route: 065

REACTIONS (12)
  - Abnormal behaviour [Recovered/Resolved]
  - Crying [Recovered/Resolved]
  - Headache [Recovered/Resolved]
  - Dizziness [Recovered/Resolved]
  - Depression suicidal [Recovering/Resolving]
  - Panic attack [Recovered/Resolved with Sequelae]
  - Lethargy [Recovered/Resolved with Sequelae]
  - Anxiety [Recovering/Resolving]
  - Fatigue [Recovered/Resolved with Sequelae]
  - Confusional state [Recovered/Resolved]
  - Nausea [Recovered/Resolved]
  - Migraine [Recovered/Resolved]

NARRATIVE: CASE EVENT DATE: 20180517
